APPROVED DRUG PRODUCT: ZUSDURI
Active Ingredient: MITOMYCIN
Strength: 40MG/VIAL
Dosage Form/Route: POWDER;INTRAVESICAL
Application: N215793 | Product #001
Applicant: UROGEN PHARMA LTD
Approved: Jun 12, 2025 | RLD: Yes | RS: Yes | Type: RX

PATENTS:
Patent 10039832 | Expires: Jan 20, 2031
Patent 9950069 | Expires: Jan 20, 2031
Patent 9040074 | Expires: Jan 20, 2031
Patent 12440568 | Expires: Jan 20, 2031

EXCLUSIVITY:
Code: NP | Date: Jun 12, 2028